FAERS Safety Report 7900891-3 (Version None)
Quarter: 2011Q4

REPORT INFORMATION
  Report Type: 
  Country: None (occurrence: None)
  Receive Date: 20111104
  Receipt Date: 20111025
  Transmission Date: 20120403
  Serious: Yes (Hospitalization)
  Sender: FDA-Public Use
  Company Number: DSJ-2011-23292

PATIENT
  Age: 65 Year
  Sex: Female

DRUGS (4)
  1. ACETYLSALICYLIC ACID SRT [Concomitant]
  2. BENICAR HCT [Suspect]
     Indication: HYPERTENSION
     Dosage: 20/12.5 MG (1 IN 1 D),PER ORAL
     Route: 048
     Dates: start: 20070101
  3. ROSUVASTATIN [Concomitant]
  4. DILTIAZEM [Concomitant]

REACTIONS (2)
  - CREATININE URINE INCREASED [None]
  - ROAD TRAFFIC ACCIDENT [None]
